FAERS Safety Report 9548792 (Version 1)
Quarter: 2013Q3

REPORT INFORMATION
  Report Type: Spontaneous
  Country: US (occurrence: None)
  Receive Date: 20130923
  Receipt Date: 20130923
  Transmission Date: 20140515
  Serious: No
  Sender: FDA-Public Use
  Company Number: None

PATIENT
  Age: 64 Year
  Sex: Female
  Weight: 68.04 kg

DRUGS (1)
  1. ABILIFY DK [Suspect]
     Indication: DEPRESSION
     Route: 048

REACTIONS (2)
  - Jaw disorder [None]
  - Tremor [None]
